FAERS Safety Report 9152978 (Version 1)
Quarter: 2013Q1

REPORT INFORMATION
  Report Type: Spontaneous
  Country: US (occurrence: US)
  Receive Date: 20130213
  Receipt Date: 20130213
  Transmission Date: 20140127
  Serious: Yes (Other)
  Sender: FDA-Public Use
  Company Number: US-RB-049445-13

PATIENT
  Sex: Female

DRUGS (4)
  1. MUCINEX FAST MAX ADULT COLD, FLU + SORE THROAT (ACETAMINOPHEN) [Suspect]
     Indication: PRODUCT USED FOR UNKNOWN INDICATION
     Dosage: ON 30-JAN-2013 PATIENT TOOK 2 CAPLETS EVERY 4 HOURS.
     Route: 048
     Dates: start: 20130130
  2. MUCINEX FAST MAX ADULT COLD FLU THROAT (ACETAMINOPHEN) [Suspect]
  3. MUCINEX FAST MAX ADULT COLD FLU THROAT (ACETAMINOPHEN) [Suspect]
  4. MUCINEX FAST MAX ADULT COLD FLU THROAT (ACETAMINOPHEN) [Suspect]

REACTIONS (1)
  - Haemoptysis [Not Recovered/Not Resolved]
